FAERS Safety Report 13950914 (Version 1)
Quarter: 2017Q3

REPORT INFORMATION
  Report Type: Report from Study
  Country: US (occurrence: US)
  Receive Date: 20170908
  Receipt Date: 20170908
  Transmission Date: 20171128
  Serious: Yes (Death, Other)
  Sender: FDA-Public Use
  Company Number: US-GILEAD-2017-0292334

PATIENT
  Age: 65 Year
  Sex: Male

DRUGS (8)
  1. ADCIRCA [Concomitant]
     Active Substance: TADALAFIL
  2. CELEXA [Concomitant]
     Active Substance: CITALOPRAM HYDROBROMIDE
  3. FUROSEMIDE. [Concomitant]
     Active Substance: FUROSEMIDE
  4. AMIODARONE [Concomitant]
     Active Substance: AMIODARONE
  5. DIGOXIN. [Concomitant]
     Active Substance: DIGOXIN
  6. XARELTO [Concomitant]
     Active Substance: RIVAROXABAN
  7. AMBRISENTAN [Suspect]
     Active Substance: AMBRISENTAN
     Indication: PULMONARY ARTERIAL HYPERTENSION
     Dosage: 10 MG, QD
     Route: 065
     Dates: start: 20140326, end: 20170903
  8. UPTRAVI [Concomitant]
     Active Substance: SELEXIPAG

REACTIONS (1)
  - Death [Fatal]

NARRATIVE: CASE EVENT DATE: 20170903
